FAERS Safety Report 5166755-6 (Version None)
Quarter: 2006Q4

REPORT INFORMATION
  Report Type: 
  Country: None (occurrence: None)
  Receive Date: 20061129
  Receipt Date: 20061114
  Transmission Date: 20070319
  Serious: Yes (Other)
  Sender: FDA-Public Use
  Company Number: 231620

PATIENT
  Age: 35 Year
  Sex: Female
  Weight: 66 kg

DRUGS (3)
  1. AVASTIN [Suspect]
     Indication: COLON CANCER METASTATIC
     Dosage: 100 MG, Q2W, INTRAVENOUS
     Route: 042
     Dates: start: 20050427, end: 20060922
  2. CETUXIMAB (CETUXIMAB) [Concomitant]
  3. PREDNISOLONE [Concomitant]

REACTIONS (3)
  - DISEASE PROGRESSION [None]
  - INTERSTITIAL LUNG DISEASE [None]
  - LYMPHANGITIS [None]
